FAERS Safety Report 7470009-2 (Version None)
Quarter: 2011Q2

REPORT INFORMATION
  Report Type: 
  Country: None (occurrence: None)
  Receive Date: 20110510
  Receipt Date: 20110505
  Transmission Date: 20111010
  Serious: No
  Sender: FDA-Public Use
  Company Number: US-TEVA-280613USA

PATIENT
  Sex: Female
  Weight: 54.48 kg

DRUGS (3)
  1. ERYTHROMYCIN [Concomitant]
     Indication: DERMATITIS
  2. PLAN B ONE-STEP [Suspect]
     Indication: POST COITAL CONTRACEPTION
     Dosage: 1.5 MILLIGRAM;
     Route: 048
     Dates: start: 20110504, end: 20110504
  3. TRI-SPRINTEC [Concomitant]
     Indication: CONTRACEPTION
     Dates: start: 20100701

REACTIONS (2)
  - DIZZINESS [None]
  - NAUSEA [None]
